FAERS Safety Report 24457340 (Version 2)
Quarter: 2024Q4

REPORT INFORMATION
  Report Type: Spontaneous
  Country: CA (occurrence: CA)
  Receive Date: 20241018
  Receipt Date: 20241228
  Transmission Date: 20250115
  Serious: Yes (Other)
  Sender: CELLTRION
  Company Number: CA-PFIZER INC-202300250567

PATIENT

DRUGS (5)
  1. INFLECTRA [Suspect]
     Active Substance: INFLIXIMAB-DYYB
     Indication: Ankylosing spondylitis
     Dosage: 400 MG, EVERY 8 WEEKS
     Route: 042
     Dates: start: 20230829
  2. INFLECTRA [Suspect]
     Active Substance: INFLIXIMAB-DYYB
     Dosage: 400 MG, EVERY 8 WEEKS
     Route: 042
     Dates: start: 20230829
  3. INFLECTRA [Suspect]
     Active Substance: INFLIXIMAB-DYYB
     Dosage: 400 MG, EVERY 8 WEEKS ( AFTER 13 WEEKS AND 1 DAY)
     Route: 042
     Dates: start: 20231129
  4. INFLECTRA [Suspect]
     Active Substance: INFLIXIMAB-DYYB
     Dosage: 400 MG, EVERY 8 WEEKS (4MG/KG)
     Route: 042
     Dates: start: 20240905
  5. INFLECTRA [Suspect]
     Active Substance: INFLIXIMAB-DYYB
     Dosage: 400 MG, EVERY 8 WEEKS (4MG/KG)
     Route: 042
     Dates: start: 20241029

REACTIONS (8)
  - Gastrointestinal disorder [Unknown]
  - Condition aggravated [Not Recovered/Not Resolved]
  - Nausea [Not Recovered/Not Resolved]
  - Fatigue [Not Recovered/Not Resolved]
  - Vomiting [Not Recovered/Not Resolved]
  - Constipation [Not Recovered/Not Resolved]
  - Retching [Not Recovered/Not Resolved]
  - Off label use [Unknown]

NARRATIVE: CASE EVENT DATE: 20230101
